FAERS Safety Report 11498400 (Version 1)
Quarter: 2015Q3

REPORT INFORMATION
  Report Type: Spontaneous
  Country: GR (occurrence: GR)
  Receive Date: 20150911
  Receipt Date: 20150911
  Transmission Date: 20151125
  Serious: Yes (Hospitalization, Other)
  Sender: FDA-Public Use
  Company Number: GR-ASTRAZENECA-2015SE87406

PATIENT
  Age: 48 Year
  Sex: Female

DRUGS (24)
  1. FULVESTRANT [Suspect]
     Active Substance: FULVESTRANT
     Indication: BREAST CANCER METASTATIC
     Route: 030
     Dates: start: 201104, end: 201108
  2. DENOSUMAB [Suspect]
     Active Substance: DENOSUMAB
     Indication: BREAST CANCER
     Dates: start: 201406
  3. OMEPRAZOLE. [Concomitant]
     Active Substance: OMEPRAZOLE
  4. CITALOPRAM [Concomitant]
     Active Substance: CITALOPRAM HYDROBROMIDE
  5. BEVACIZUMAB [Suspect]
     Active Substance: BEVACIZUMAB
     Indication: BREAST CANCER
     Dates: start: 2008
  6. TAMOXIFEN [Suspect]
     Active Substance: TAMOXIFEN
     Indication: BREAST CANCER
     Route: 065
  7. CAPECITABINE. [Suspect]
     Active Substance: CAPECITABINE
     Indication: BREAST CANCER
     Dates: start: 201108
  8. ERIBULIN [Suspect]
     Active Substance: ERIBULIN
     Indication: BREAST CANCER
     Dates: start: 201404
  9. LETROZOLE. [Suspect]
     Active Substance: LETROZOLE
     Indication: BREAST CANCER
     Dates: start: 200903, end: 201104
  10. GEMCITABINE [Suspect]
     Active Substance: GEMCITABINE\GEMCITABINE HYDROCHLORIDE
     Indication: BREAST CANCER
     Dates: start: 201406
  11. CARBOPLATIN. [Suspect]
     Active Substance: CARBOPLATIN
     Indication: BREAST CANCER
     Route: 065
     Dates: start: 2008
  12. EVEROLIMUS [Suspect]
     Active Substance: EVEROLIMUS
     Dates: start: 201304, end: 201308
  13. EXEMESTANE. [Concomitant]
     Active Substance: EXEMESTANE
     Dates: start: 201304
  14. ALPRAZOLAM. [Concomitant]
     Active Substance: ALPRAZOLAM
  15. BEVACIZUMAB [Suspect]
     Active Substance: BEVACIZUMAB
     Indication: BREAST CANCER
     Dosage: UNKNOWN, 6 CYCLES
     Dates: start: 2008, end: 200811
  16. TRASTUZUMAB [Concomitant]
     Active Substance: TRASTUZUMAB
     Dates: start: 2008, end: 2008
  17. MAGNESIUM [Concomitant]
     Active Substance: MAGNESIUM
  18. NAB-PACLITAXEL [Suspect]
     Active Substance: PACLITAXEL
     Indication: BREAST CANCER
     Dates: start: 201312
  19. ZOLEDRONIC ACID [Suspect]
     Active Substance: ZOLEDRONIC ACID
     Indication: BREAST CANCER
     Dosage: PFIZER, MAINTENANCE TREATMENT
     Route: 065
     Dates: start: 200812
  20. DOXORUBICIN HYDROCHLORIDE. [Suspect]
     Active Substance: DOXORUBICIN HYDROCHLORIDE
     Indication: BREAST CANCER
     Dates: start: 201308
  21. VINORELBINE [Concomitant]
     Active Substance: VINORELBINE\VINORELBINE TARTRATE
     Dates: start: 201409
  22. VITAMIN D [Concomitant]
     Active Substance: CHOLECALCIFEROL
  23. TRIPTORELIN [Suspect]
     Active Substance: TRIPTORELIN
     Indication: BREAST CANCER
     Dates: end: 20150209
  24. L-THYROXINE [Concomitant]
     Active Substance: LEVOTHYROXINE

REACTIONS (8)
  - Asthenia [Unknown]
  - Anaemia [Unknown]
  - Cough [Unknown]
  - Neutrophil count increased [Unknown]
  - Pneumonitis [Recovered/Resolved]
  - Malignant neoplasm progression [Unknown]
  - Back pain [Unknown]
  - Decreased appetite [Unknown]

NARRATIVE: CASE EVENT DATE: 200806
